FAERS Safety Report 9806971 (Version 2)
Quarter: 2014Q1

REPORT INFORMATION
  Report Type: Spontaneous
  Country: GB (occurrence: GB)
  Receive Date: 20140109
  Receipt Date: 20140202
  Transmission Date: 20141002
  Serious: Yes (Death, Hospitalization)
  Sender: FDA-Public Use
  Company Number: GB-PFIZER INC-2014005425

PATIENT
  Age: 58 Year
  Sex: Female
  Weight: 58.3 kg

DRUGS (13)
  1. CAMPTO [Suspect]
     Indication: COLORECTAL CANCER
     Dosage: 280 MG, EVERY 14 DAYS
     Route: 042
     Dates: start: 20131202, end: 20131216
  2. FOLINIC ACID [Concomitant]
     Indication: COLORECTAL CANCER
     Dosage: 850 MG, IN NACL 0.9% EVERY 14 DAYS
     Route: 042
     Dates: start: 20131202, end: 20131216
  3. 5-FU [Concomitant]
     Indication: COLORECTAL CANCER
     Dosage: 640 MG, EVERY 14 DAYS
     Route: 042
     Dates: start: 20131202, end: 20131216
  4. 5-FU [Concomitant]
     Dosage: 3800 MG IN HCL 0.9%, CYCLIC
     Route: 042
     Dates: start: 20131202, end: 20131216
  5. PALONOSETRON [Concomitant]
     Indication: PROPHYLAXIS OF NAUSEA AND VOMITING
     Dosage: 250 UG, UNK
     Route: 042
     Dates: start: 20131202, end: 20131216
  6. DEXAMETHASONE [Concomitant]
     Indication: PROPHYLAXIS OF NAUSEA AND VOMITING
     Dosage: 4 MG, 2X/DAY (2 X 2MG TABLETS)
     Dates: start: 20131202, end: 20131216
  7. DEXAMETHASONE [Concomitant]
     Dosage: 4 MG, 2X/DAY (2 TABLETS TWICE DAILY)
     Dates: start: 20131217
  8. DOMPERIDONE [Concomitant]
     Indication: ANTIEMETIC SUPPORTIVE CARE
     Dosage: 20 MG, 4X/DAY (2 X 10 MG TABLETS, 4 TIMES A DAY)
     Dates: start: 20131216
  9. BIOTENE MOUTHWASH [Concomitant]
     Indication: PROPHYLAXIS
     Dosage: 15 ML, 4X/DAY
  10. ZOTON [Concomitant]
     Indication: PROPHYLAXIS
     Dosage: 30 MG, 2X/DAY
  11. ZOTON [Concomitant]
     Indication: DYSPEPSIA
  12. ACICLOVIR [Concomitant]
     Indication: ANTIVIRAL PROPHYLAXIS
     Dosage: 400 MG, 2X/DAY
  13. BUSCOPAN [Concomitant]
     Indication: ABDOMINAL PAIN
     Dosage: 10 MG, AS NEEDED 10 MG, 4X/DAY

REACTIONS (2)
  - Gastrointestinal hypomotility [Fatal]
  - Gastrointestinal toxicity [Fatal]
